FAERS Safety Report 8816649 (Version 2)
Quarter: 2013Q1

REPORT INFORMATION
  Report Type: Spontaneous
  Country: FR (occurrence: None)
  Receive Date: 20120928
  Receipt Date: 20121127
  Transmission Date: 20140127
  Serious: Yes (Life-Threatening, Hospitalization, Other)
  Sender: FDA-Public Use
  Company Number: 2012CP000114

PATIENT
  Age: 25 Year
  Sex: Female

DRUGS (7)
  1. PERFALGAN [Suspect]
     Indication: PAIN
     Route: 042
     Dates: start: 20120806, end: 20120807
  2. CONTRAMAL [Concomitant]
  3. ONDANSETRON HCL [Concomitant]
  4. PRIMPERAN [Concomitant]
  5. TAZOCILLINE [Concomitant]
  6. AMIKACIN [Concomitant]
  7. OMEPRAZOLE [Concomitant]

REACTIONS (3)
  - Hepatitis [None]
  - Fatigue [None]
  - Gastrointestinal disorder [None]
